FAERS Safety Report 9351347 (Version 1)
Quarter: 2013Q2

REPORT INFORMATION
  Report Type: Spontaneous
  Country: IE (occurrence: IE)
  Receive Date: 20130617
  Receipt Date: 20130617
  Transmission Date: 20140414
  Serious: Yes (Death, Hospitalization)
  Sender: FDA-Public Use
  Company Number: PHHY2013IE060773

PATIENT
  Sex: Male

DRUGS (2)
  1. CIPROFLOXACIN [Suspect]
     Indication: LOWER RESPIRATORY TRACT INFECTION
     Dosage: 500 MG, BID
  2. ESOMEPRAZOLE [Concomitant]

REACTIONS (6)
  - Cardiogenic shock [Fatal]
  - Choreoathetosis [Recovered/Resolved]
  - Tremor [Recovered/Resolved]
  - Insomnia [Unknown]
  - Restlessness [Recovered/Resolved]
  - Asthenia [Unknown]
